FAERS Safety Report 17092924 (Version 1)
Quarter: 2019Q4

REPORT INFORMATION
  Report Type: Report from Study
  Country: US (occurrence: US)
  Receive Date: 20191129
  Receipt Date: 20191129
  Transmission Date: 20200122
  Serious: Yes (Death, Hospitalization, Disabling)
  Sender: FDA-Public Use
  Company Number: NVSC2019US002851

PATIENT
  Age: 58 Year
  Sex: Female

DRUGS (1)
  1. LAMPRENE [Suspect]
     Active Substance: CLOFAZIMINE
     Indication: MYCOBACTERIUM ABSCESSUS INFECTION
     Dosage: 50 MG, QD
     Route: 048
     Dates: start: 20190214, end: 20191120

REACTIONS (5)
  - Dyspnoea [Not Recovered/Not Resolved]
  - Hypotension [Unknown]
  - Respiratory arrest [Fatal]
  - Epistaxis [Not Recovered/Not Resolved]
  - Shock [Fatal]

NARRATIVE: CASE EVENT DATE: 20190912
